FAERS Safety Report 7949777-9 (Version None)
Quarter: 2011Q4

REPORT INFORMATION
  Report Type: 
  Country: None (occurrence: None)
  Receive Date: 20111130
  Receipt Date: 20111123
  Transmission Date: 20120403
  Serious: Yes (Other)
  Sender: FDA-Public Use
  Company Number: PHEH2011US008902

PATIENT
  Sex: Female

DRUGS (5)
  1. RECLAST [Suspect]
     Indication: OSTEOPOROSIS
     Dosage: UNK
     Route: 042
     Dates: start: 20111020
  2. MINERALS NOS [Concomitant]
  3. VITAMINS NOS [Concomitant]
  4. CEFTAZIDIME [Concomitant]
  5. CALCIUM CARBONATE [Concomitant]

REACTIONS (8)
  - HYPERCALCAEMIA [None]
  - COUGH [None]
  - FOREIGN BODY [None]
  - DYSPHAGIA [None]
  - VAGINAL HAEMORRHAGE [None]
  - DYSPNOEA [None]
  - INCREASED UPPER AIRWAY SECRETION [None]
  - FATIGUE [None]
